FAERS Safety Report 24833200 (Version 1)
Quarter: 2025Q1

REPORT INFORMATION
  Report Type: Spontaneous
  Country: CA (occurrence: CA)
  Receive Date: 20250111
  Receipt Date: 20250111
  Transmission Date: 20250408
  Serious: Yes (Other)
  Sender: ACCORD
  Company Number: None

PATIENT
  Age: 9 Year
  Sex: Female

DRUGS (2)
  1. METHOTREXATE SODIUM [Suspect]
     Active Substance: METHOTREXATE SODIUM
     Indication: Crohn^s disease
     Route: 065
  2. INFLIXIMAB [Concomitant]
     Active Substance: INFLIXIMAB
     Indication: Crohn^s disease

REACTIONS (5)
  - Anorectal disorder [Unknown]
  - Condition aggravated [Unknown]
  - Growth failure [Unknown]
  - Blood albumin decreased [Unknown]
  - Off label use [Unknown]
